FAERS Safety Report 8719776 (Version 2)
Quarter: 2013Q4

REPORT INFORMATION
  Report Type: Spontaneous
  Country: US (occurrence: US)
  Receive Date: 20120813
  Receipt Date: 20131016
  Transmission Date: 20140711
  Serious: Yes (Other)
  Sender: FDA-Public Use
  Company Number: US-UCBSA-063247

PATIENT
  Age: 42 Year
  Sex: Male
  Weight: 90.71 kg

DRUGS (4)
  1. VIMPAT [Suspect]
     Indication: PETIT MAL EPILEPSY
     Dates: start: 2011
  2. VIMPAT [Suspect]
     Indication: PETIT MAL EPILEPSY
     Dosage: UNSPECIFIED DOSE
     Dates: end: 2012
  3. VIMPAT [Suspect]
     Indication: PETIT MAL EPILEPSY
     Dosage: DOSE DOWNTITRATED
     Dates: start: 2012, end: 201204
  4. HYDROCODONE [Concomitant]
     Indication: SLEEP DISORDER
     Dosage: 10-325, 1PER NIGHT
     Dates: start: 201111

REACTIONS (2)
  - Surgery [Unknown]
  - Amnesia [Not Recovered/Not Resolved]
